FAERS Safety Report 16941492 (Version 2)
Quarter: 2019Q4

REPORT INFORMATION
  Report Type: Spontaneous
  Country: RU (occurrence: RU)
  Receive Date: 20191021
  Receipt Date: 20191105
  Transmission Date: 20200122
  Serious: Yes (Hospitalization, Other)
  Sender: FDA-Public Use
  Company Number: RU-SHIRE-RU201934681

PATIENT

DRUGS (1)
  1. ELAPRASE [Suspect]
     Active Substance: IDURSULFASE
     Indication: PRODUCT USED FOR UNKNOWN INDICATION
     Dosage: 2 DOSAGE FORM, 1X/WEEK
     Route: 065
     Dates: start: 201811

REACTIONS (4)
  - Bronchitis chronic [Unknown]
  - Pneumonia [Unknown]
  - Stomatitis [Unknown]
  - Inappropriate schedule of product administration [Unknown]
